FAERS Safety Report 7261913-9 (Version None)
Quarter: 2011Q1

REPORT INFORMATION
  Report Type: 
  Country: None (occurrence: None)
  Receive Date: 20110120
  Receipt Date: 20110111
  Transmission Date: 20110831
  Serious: Yes (Other)
  Sender: FDA-Public Use
  Company Number: CIP11000054

PATIENT
  Age: 57 Year
  Sex: Female

DRUGS (2)
  1. FOSAMAX [Suspect]
     Dates: start: 20070101, end: 20090101
  2. ACTONEL [Suspect]
     Dosage: ORAL
     Route: 048
     Dates: start: 20030501, end: 20070101

REACTIONS (5)
  - LOW TURNOVER OSTEOPATHY [None]
  - PAIN [None]
  - BONE DISORDER [None]
  - FEMUR FRACTURE [None]
  - STRESS FRACTURE [None]
